FAERS Safety Report 24023004 (Version 1)
Quarter: 2024Q2

REPORT INFORMATION
  Report Type: Report from Study
  Country: US (occurrence: US)
  Receive Date: 20240627
  Receipt Date: 20240627
  Transmission Date: 20240715
  Serious: No
  Sender: FDA-Public Use
  Company Number: US-ROCHE-3558671

PATIENT
  Age: 68 Year
  Sex: Female

DRUGS (14)
  1. VABYSMO [Suspect]
     Active Substance: FARICIMAB\FARICIMAB-SVOA
     Indication: Diabetic retinopathy
     Route: 065
  2. VABYSMO [Suspect]
     Active Substance: FARICIMAB\FARICIMAB-SVOA
     Indication: Macular oedema
  3. COSOPT PF [Concomitant]
     Active Substance: DORZOLAMIDE HYDROCHLORIDE\TIMOLOL MALEATE
  4. LASIX [Concomitant]
     Active Substance: FUROSEMIDE
  5. APRESOLINE HYDROCHLORIDE [Concomitant]
     Active Substance: HYDRALAZINE HYDROCHLORIDE
  6. COZAAR [Concomitant]
     Active Substance: LOSARTAN POTASSIUM
  7. GLUCOPHAGE XR [Concomitant]
     Active Substance: METFORMIN HYDROCHLORIDE
  8. RHOPRESSA [Concomitant]
     Active Substance: NETARSUDIL MESYLATE
  9. PRAVACHOL [Concomitant]
     Active Substance: PRAVASTATIN SODIUM
  10. CHOLECALCIFEROL [Concomitant]
     Active Substance: CHOLECALCIFEROL
  11. EYLEA [Concomitant]
     Active Substance: AFLIBERCEPT
  12. BRIMONIDINE TARTRATE [Concomitant]
     Active Substance: BRIMONIDINE TARTRATE
  13. OZURDEX [Concomitant]
     Active Substance: DEXAMETHASONE
  14. XYLOCAINE [Concomitant]
     Active Substance: LIDOCAINE HYDROCHLORIDE\LIDOCAINE HYDROCHLORIDE ANHYDROUS

REACTIONS (6)
  - Coronary artery disease [Not Recovered/Not Resolved]
  - Chronic kidney disease [Unknown]
  - Uterine leiomyoma [Unknown]
  - Cataract nuclear [Not Recovered/Not Resolved]
  - Cataract [Not Recovered/Not Resolved]
  - Peripheral vascular disorder [Not Recovered/Not Resolved]

NARRATIVE: CASE EVENT DATE: 20150429
